FAERS Safety Report 12529715 (Version 1)
Quarter: 2016Q3

REPORT INFORMATION
  Report Type: Spontaneous
  Country: ES (occurrence: ES)
  Receive Date: 20160706
  Receipt Date: 20160706
  Transmission Date: 20161109
  Serious: Yes (Hospitalization, Other)
  Sender: FDA-Public Use
  Company Number: ES-ZYDUS-011464

PATIENT
  Age: 84 Year
  Sex: Female

DRUGS (2)
  1. SERTRALINE [Suspect]
     Active Substance: SERTRALINE HYDROCHLORIDE
     Indication: ANTIDEPRESSANT THERAPY
     Route: 065
  2. SERTRALINE [Suspect]
     Active Substance: SERTRALINE HYDROCHLORIDE
     Indication: ANTIDEPRESSANT THERAPY
     Route: 065

REACTIONS (6)
  - Toxicity to various agents [Recovering/Resolving]
  - Hallucination, visual [Recovering/Resolving]
  - Aggression [Recovered/Resolved]
  - Altered state of consciousness [Recovering/Resolving]
  - Delirium [Recovering/Resolving]
  - Abnormal behaviour [Recovering/Resolving]
